FAERS Safety Report 17188186 (Version 1)
Quarter: 2019Q4

REPORT INFORMATION
  Report Type: Spontaneous
  Country: SE (occurrence: SE)
  Receive Date: 20191221
  Receipt Date: 20191221
  Transmission Date: 20200122
  Serious: Yes (Hospitalization)
  Sender: FDA-Public Use
  Company Number: SE-TEVA-2019-SE-1154526

PATIENT
  Age: 67 Year
  Sex: Male

DRUGS (3)
  1. MIRTAZAPINE. [Suspect]
     Active Substance: MIRTAZAPINE
     Dosage: 30 MG
     Route: 048
     Dates: start: 20181203, end: 20181203
  2. PROPAVAN [Suspect]
     Active Substance: PROPIOMAZINE
     Dosage: 250 MG
     Route: 048
     Dates: start: 20181203, end: 20181203
  3. IMOVANE [Suspect]
     Active Substance: ZOPICLONE
     Dosage: 75 MG
     Route: 048
     Dates: start: 20181203, end: 20181203

REACTIONS (3)
  - Intentional self-injury [Unknown]
  - Intentional overdose [Unknown]
  - Depressed level of consciousness [Unknown]

NARRATIVE: CASE EVENT DATE: 20181203
